FAERS Safety Report 16688214 (Version 4)
Quarter: 2019Q4

REPORT INFORMATION
  Report Type: Report from Study
  Country: US (occurrence: US)
  Receive Date: 20190809
  Receipt Date: 20191014
  Transmission Date: 20200122
  Serious: Yes (Hospitalization)
  Sender: FDA-Public Use
  Company Number: US-ACTELION-A-NJ2019-193884

PATIENT
  Age: 66 Year
  Sex: Male
  Weight: 72.11 kg

DRUGS (3)
  1. OPSUMIT [Suspect]
     Active Substance: MACITENTAN
     Indication: PULMONARY ARTERIAL HYPERTENSION
     Dosage: 10 MG, QD
     Route: 048
     Dates: start: 20190620, end: 20190904
  2. SILDENAFIL CITRATE. [Concomitant]
     Active Substance: SILDENAFIL CITRATE
  3. ELIQUIS [Concomitant]
     Active Substance: APIXABAN

REACTIONS (9)
  - Oedema [Not Recovered/Not Resolved]
  - Weight decreased [Recovering/Resolving]
  - Abdominal pain upper [Unknown]
  - Pulmonary arterial hypertension [Unknown]
  - Hospitalisation [Unknown]
  - Peripheral swelling [Not Recovered/Not Resolved]
  - Appendicitis [Unknown]
  - Blood bilirubin increased [Unknown]
  - Fluid retention [Unknown]

NARRATIVE: CASE EVENT DATE: 20190718
